FAERS Safety Report 7217834-0 (Version None)
Quarter: 2011Q1

REPORT INFORMATION
  Report Type: 
  Country: None (occurrence: None)
  Receive Date: 20110110
  Receipt Date: 20101227
  Transmission Date: 20110831
  Serious: Yes (Other)
  Sender: FDA-Public Use
  Company Number: PHHY2010FR90201

PATIENT
  Age: 62 Year
  Sex: Female

DRUGS (4)
  1. CYCLOPHOSPHAMIDE [Suspect]
     Dosage: UNK
     Dates: start: 20101008
  2. DOXORUBICIN [Suspect]
     Dosage: UNK
     Dates: start: 20101008
  3. VINCRISTINE [Suspect]
  4. PREDNISONE [Suspect]
     Dosage: UNK
     Dates: start: 20101008

REACTIONS (3)
  - DIARRHOEA [None]
  - PYREXIA [None]
  - AGITATION [None]
